FAERS Safety Report 23647977 (Version 5)
Quarter: 2024Q3

REPORT INFORMATION
  Report Type: Spontaneous
  Country: FR (occurrence: FR)
  Receive Date: 20240319
  Receipt Date: 20240924
  Transmission Date: 20241016
  Serious: Yes (Other)
  Sender: JOHNSON AND JOHNSON
  Company Number: FR-002147023-NVSC2023FR165681

PATIENT
  Age: 55 Year
  Sex: Male
  Weight: 75 kg

DRUGS (7)
  1. ZYTIGA [Suspect]
     Active Substance: ABIRATERONE ACETATE
     Indication: Hormone-dependent prostate cancer
     Dosage: 1000 MG, ONCE
     Route: 048
     Dates: start: 20230606
  2. ZYTIGA [Suspect]
     Active Substance: ABIRATERONE ACETATE
     Indication: Product used for unknown indication
  3. XTANDI [Concomitant]
     Active Substance: ENZALUTAMIDE
  4. DEGARELIX [Concomitant]
     Active Substance: DEGARELIX
     Indication: Prostate cancer
     Dates: start: 20230605
  5. PREDNISONE [Concomitant]
     Active Substance: PREDNISONE
     Dates: start: 20230606, end: 20230726
  6. CACIT [CALCIUM CARBONATE;COLECALCIFEROL] [Concomitant]
  7. TRIPTORELIN [Concomitant]
     Active Substance: TRIPTORELIN
     Indication: Hormone-dependent prostate cancer

REACTIONS (8)
  - Hepatic function abnormal [Recovering/Resolving]
  - Aspartate aminotransferase increased [Recovered/Resolved]
  - Blood bilirubin increased [Recovered/Resolved]
  - Alanine aminotransferase increased [Recovered/Resolved]
  - Blood alkaline phosphatase increased [Recovered/Resolved]
  - Gamma-glutamyltransferase increased [Recovered/Resolved]
  - Blood lactate dehydrogenase increased [Recovered/Resolved]
  - Blood bilirubin increased [Recovered/Resolved]

NARRATIVE: CASE EVENT DATE: 20230717
